FAERS Safety Report 22236278 (Version 1)
Quarter: 2023Q2

REPORT INFORMATION
  Report Type: Spontaneous
  Country: BR (occurrence: BR)
  Receive Date: 20230420
  Receipt Date: 20230420
  Transmission Date: 20230721
  Serious: Yes (Death, Hospitalization, Other)
  Sender: FDA-Public Use
  Company Number: BR-AMGEN-BRASP2023063218

PATIENT
  Age: 86 Year
  Sex: Female

DRUGS (1)
  1. PROLIA [Suspect]
     Active Substance: DENOSUMAB
     Indication: Product used for unknown indication
     Dosage: UNK
     Route: 065
     Dates: start: 201908

REACTIONS (4)
  - Fall [Fatal]
  - Multiple fractures [Fatal]
  - Blood parathyroid hormone increased [Unknown]
  - Haemodialysis [Unknown]

NARRATIVE: CASE EVENT DATE: 20190101
